FAERS Safety Report 6821036-7 (Version None)
Quarter: 2010Q3

REPORT INFORMATION
  Report Type: 
  Country: None (occurrence: None)
  Receive Date: 20100707
  Receipt Date: 20071128
  Transmission Date: 20110219
  Serious: No
  Sender: FDA-Public Use
  Company Number: US-PFIZER INC-2007081857

PATIENT
  Sex: Female
  Weight: 81.818 kg

DRUGS (2)
  1. ZOLOFT [Suspect]
     Indication: HOT FLUSH
     Route: 048
     Dates: start: 19990101
  2. FEMARA [Concomitant]
     Route: 048
     Dates: start: 20030101

REACTIONS (1)
  - DRUG INEFFECTIVE [None]
